FAERS Safety Report 18559738 (Version 1)
Quarter: 2020Q4

REPORT INFORMATION
  Report Type: Spontaneous
  Country: US (occurrence: US)
  Receive Date: 20201129
  Receipt Date: 20201129
  Transmission Date: 20210114
  Serious: Yes (Disabling, Other)
  Sender: FDA-Public Use
  Company Number: None

PATIENT
  Age: 19 Year
  Sex: Female
  Weight: 65.25 kg

DRUGS (1)
  1. ADVANCE WHITE EXTREME WHITENING TARTAR CONTROL [Suspect]
     Active Substance: SODIUM FLUORIDE
     Indication: DENTAL DISORDER PROPHYLAXIS
     Dates: start: 20201123, end: 20201124

REACTIONS (5)
  - Tongue eruption [None]
  - Oral pain [None]
  - Lip swelling [None]
  - Gingival abscess [None]
  - Mouth ulceration [None]

NARRATIVE: CASE EVENT DATE: 20201123
